FAERS Safety Report 6618305-2 (Version None)
Quarter: 2010Q1

REPORT INFORMATION
  Report Type: 
  Country: None (occurrence: None)
  Receive Date: 20100302
  Receipt Date: 20100218
  Transmission Date: 20100710
  Serious: Yes (Hospitalization, Other)
  Sender: FDA-Public Use
  Company Number: 2009SP030810

PATIENT
  Age: 41 Year
  Sex: Female

DRUGS (3)
  1. NUVARING [Suspect]
     Indication: DRUG USE FOR UNKNOWN INDICATION
     Dates: start: 20040901, end: 20080324
  2. WELLBUTRIN [Concomitant]
  3. LEXAPRO [Concomitant]

REACTIONS (8)
  - BILIARY DYSKINESIA [None]
  - DYSPNOEA [None]
  - INTRACRANIAL VENOUS SINUS THROMBOSIS [None]
  - JUGULAR VEIN THROMBOSIS [None]
  - LUMBAR PUNCTURE ABNORMAL [None]
  - NEOPLASM OF APPENDIX [None]
  - TRANSVERSE SINUS THROMBOSIS [None]
  - VAGINITIS BACTERIAL [None]
